FAERS Safety Report 5417767-6 (Version None)
Quarter: 2007Q3

REPORT INFORMATION
  Report Type: 
  Country: None (occurrence: None)
  Receive Date: 20070815
  Receipt Date: 20070815
  Transmission Date: 20080115
  Serious: Yes (Hospitalization)
  Sender: FDA-Public Use
  Company Number: None

PATIENT
  Sex: Female
  Weight: 117.4816 kg

DRUGS (7)
  1. LISINOPRIL [Suspect]
     Indication: HYPERTENSION
     Dosage: 20MG PO  (THERAPY DATES: STARTED 4 MONTHS AGO)
     Route: 048
  2. SALMON [Suspect]
     Dosage: PO (THERAPY DATES: LAST NIGHT)
     Route: 048
  3. HYZAAR [Concomitant]
  4. METFORMIN [Concomitant]
  5. COZAAR [Concomitant]
  6. GLIPIZIDE [Concomitant]
  7. ACTOS [Concomitant]

REACTIONS (2)
  - ANGIOEDEMA [None]
  - SWOLLEN TONGUE [None]
